FAERS Safety Report 6000108-3 (Version None)
Quarter: 2008Q4

REPORT INFORMATION
  Report Type: 
  Country: None (occurrence: None)
  Receive Date: 20081211
  Receipt Date: 20081211
  Transmission Date: 20090506
  Serious: Yes (Other)
  Sender: FDA-Public Use
  Company Number: None

PATIENT
  Age: 2 Year
  Sex: Male

DRUGS (1)
  1. BENEFIBER (NCH) (GUAR GUM) POWDER [Suspect]
     Indication: CONSTIPATION
     Dosage: 5ML BID OF 3 SACHETS IN 100ML OF WATER, ORAL
     Route: 048
     Dates: start: 20081129, end: 20081130

REACTIONS (1)
  - DRUG INEFFECTIVE [None]
